FAERS Safety Report 4726349-0 (Version None)
Quarter: 2005Q3

REPORT INFORMATION
  Report Type: 
  Country: None (occurrence: None)
  Receive Date: 20050727
  Receipt Date: 20050718
  Transmission Date: 20060218
  Serious: Yes (Death)
  Sender: FDA-Public Use
  Company Number: RU-ABBOTT-05P-251-0306124-00

PATIENT
  Sex: Female

DRUGS (3)
  1. KALETRA [Suspect]
     Indication: HIV INFECTION
     Dosage: 133.3/33.3 MG
     Route: 048
  2. STAVUDINE [Concomitant]
  3. LAMIVUDINE [Concomitant]

REACTIONS (1)
  - LYMPHOMA [None]
